FAERS Safety Report 8414914-9 (Version None)
Quarter: 2012Q2

REPORT INFORMATION
  Report Type: 
  Country: None (occurrence: None)
  Receive Date: 20120601
  Receipt Date: 20120601
  Transmission Date: 20120825
  Serious: Yes (Hospitalization)
  Sender: FDA-Public Use
  Company Number: None

PATIENT
  Age: 62 Year
  Sex: Female
  Weight: 104.7809 kg

DRUGS (5)
  1. CALCIUM [Concomitant]
  2. INLYTA [Suspect]
     Indication: RENAL CELL CARCINOMA
     Dosage: ONCE DAILY PO
     Route: 048
     Dates: start: 20120301, end: 20120401
  3. VITAMIN D [Concomitant]
  4. WARFRIN [Concomitant]
  5. LISINOPRIL [Concomitant]

REACTIONS (4)
  - ENCEPHALOPATHY [None]
  - RENAL DISORDER [None]
  - RENAL HAEMORRHAGE [None]
  - THROMBOSIS [None]
